FAERS Safety Report 15463798 (Version 1)
Quarter: 2018Q4

REPORT INFORMATION
  Report Type: Report from Study
  Country: PT (occurrence: PT)
  Receive Date: 20181004
  Receipt Date: 20181004
  Transmission Date: 20190204
  Serious: Yes (Life-Threatening, Other)
  Sender: FDA-Public Use
  Company Number: PT-ASTELLAS-2018US042636

PATIENT
  Age: 30 Year
  Sex: Male

DRUGS (24)
  1. BUPRENORPHINE. [Suspect]
     Active Substance: BUPRENORPHINE
     Indication: HEPATITIS C
  2. FLURAZEPAM [Suspect]
     Active Substance: FLURAZEPAM\FLURAZEPAM HYDROCHLORIDE
     Indication: HIV INFECTION
     Dosage: 1 ML OF TRIAMCINOLONE 40MG INJECTED
     Route: 065
  3. DIDANOSINE. [Suspect]
     Active Substance: DIDANOSINE
     Indication: CHRONIC HEPATITIS C
     Dosage: UNK, UNKNOWN FREQ.
     Route: 065
  4. AMPHOTERICIN B, LIPOSOME [Suspect]
     Active Substance: AMPHOTERICIN B
     Indication: HIV INFECTION
     Dosage: UNK, UNKNOWN FREQ.
     Route: 065
  5. AMPHOTERICIN B, LIPOSOME [Suspect]
     Active Substance: AMPHOTERICIN B
     Indication: CHRONIC HEPATITIS C
  6. AMPHOTERICIN B, LIPOSOME [Suspect]
     Active Substance: AMPHOTERICIN B
     Indication: HEPATITIS C
     Dosage: 1 ML OF TRIAMCINOLONE 40MG INJECTED
     Route: 065
  7. BUPRENORPHINE. [Suspect]
     Active Substance: BUPRENORPHINE
     Indication: CHRONIC HEPATITIS C
     Dosage: UNK, UNKNOWN FREQ.
     Route: 065
  8. LOPINAVIR + RITONAVIR [Suspect]
     Active Substance: LOPINAVIR\RITONAVIR
     Indication: HEPATITIS C
  9. ZIDOVUDINE. [Suspect]
     Active Substance: ZIDOVUDINE
     Indication: HIV INFECTION
  10. FLURAZEPAM [Suspect]
     Active Substance: FLURAZEPAM\FLURAZEPAM HYDROCHLORIDE
     Indication: CHRONIC HEPATITIS C
     Dosage: UNK, UNKNOWN FREQ.
     Route: 065
  11. ZIDOVUDINE. [Suspect]
     Active Substance: ZIDOVUDINE
     Indication: HEPATITIS C
  12. FLURAZEPAM [Suspect]
     Active Substance: FLURAZEPAM\FLURAZEPAM HYDROCHLORIDE
     Indication: HEPATITIS C
  13. TRAMADOL. [Suspect]
     Active Substance: TRAMADOL
     Indication: HIV INFECTION
     Dosage: 1 ML OF TRIAMCINOLONE 40MG INJECTED
     Route: 065
  14. TRAMADOL. [Suspect]
     Active Substance: TRAMADOL
     Indication: HEPATITIS C
  15. DIDANOSINE. [Suspect]
     Active Substance: DIDANOSINE
     Indication: HEPATITIS C
  16. LOPINAVIR + RITONAVIR [Suspect]
     Active Substance: LOPINAVIR\RITONAVIR
     Indication: HIV INFECTION
     Dosage: UNK, UNKNOWN FREQ.
     Route: 065
  17. OXAZEPAM. [Suspect]
     Active Substance: OXAZEPAM
     Indication: PRODUCT USED FOR UNKNOWN INDICATION
     Dosage: 1 ML OF TRIAMCINOLONE 40MG INJECTED
     Route: 065
  18. ZIDOVUDINE. [Suspect]
     Active Substance: ZIDOVUDINE
     Indication: CHRONIC HEPATITIS C
     Dosage: UNK, UNKNOWN FREQ.
     Route: 065
  19. TRAMADOL. [Suspect]
     Active Substance: TRAMADOL
     Indication: CHRONIC HEPATITIS C
     Dosage: UNK, UNKNOWN FREQ.
     Route: 065
  20. ALPRAZOLAM. [Suspect]
     Active Substance: ALPRAZOLAM
     Indication: CHRONIC HEPATITIS C
     Dosage: UNK UNK, UNKNOWN FREQ.
     Route: 065
  21. ALPRAZOLAM. [Suspect]
     Active Substance: ALPRAZOLAM
     Indication: HIV INFECTION
     Dosage: 1 ML OF TRIAMCINOLONE 40MG INJECTED
     Route: 065
  22. BUPRENORPHINE. [Suspect]
     Active Substance: BUPRENORPHINE
     Indication: HIV INFECTION
     Dosage: 1 ML OF TRIAMCINOLONE 40MG INJECTED
     Route: 065
  23. DIDANOSINE. [Suspect]
     Active Substance: DIDANOSINE
     Indication: HIV INFECTION
     Dosage: 1 ML OF TRIAMCINOLONE 40MG INJECTED
     Route: 065
  24. LOPINAVIR + RITONAVIR [Suspect]
     Active Substance: LOPINAVIR\RITONAVIR
     Indication: CHRONIC HEPATITIS C
     Dosage: 1 ML OF TRIAMCINOLONE 40MG INJECTED
     Route: 065

REACTIONS (2)
  - Drug-induced liver injury [Unknown]
  - Hepatic fibrosis [Unknown]
